FAERS Safety Report 6914049-8 (Version None)
Quarter: 2010Q3

REPORT INFORMATION
  Report Type: 
  Country: None (occurrence: None)
  Receive Date: 20100809
  Receipt Date: 20100728
  Transmission Date: 20110219
  Serious: Yes (Other)
  Sender: FDA-Public Use
  Company Number: PHHY2010DE50723

PATIENT
  Sex: Female

DRUGS (2)
  1. RASILEZ HCT [Suspect]
     Dosage: UNK
     Dates: start: 20090204
  2. FUROSEMIDE [Interacting]
     Dosage: UNK
     Dates: start: 20090204

REACTIONS (3)
  - BRAIN NATRIURETIC PEPTIDE INCREASED [None]
  - DRUG INTERACTION [None]
  - OEDEMA [None]
